FAERS Safety Report 13028427 (Version 1)
Quarter: 2016Q4

REPORT INFORMATION
  Report Type: Spontaneous
  Country: US (occurrence: US)
  Receive Date: 20161214
  Receipt Date: 20161214
  Transmission Date: 20170207
  Serious: Yes (Death)
  Sender: FDA-Public Use
  Company Number: US-INCYTE CORPORATION-2016IN008008

PATIENT
  Age: 51 Year
  Sex: Female

DRUGS (29)
  1. PANTOPRAZOLE [Concomitant]
     Active Substance: PANTOPRAZOLE SODIUM
  2. NOXAFIL [Concomitant]
     Active Substance: POSACONAZOLE
  3. FUROSEMIDE. [Concomitant]
     Active Substance: FUROSEMIDE
  4. POTASSIUM CHLORIDE. [Concomitant]
     Active Substance: POTASSIUM CHLORIDE
  5. CLONIDINE. [Concomitant]
     Active Substance: CLONIDINE
  6. NYSTATIN. [Concomitant]
     Active Substance: NYSTATIN
  7. METOPROLOL TARTRATE. [Concomitant]
     Active Substance: METOPROLOL TARTRATE
  8. FLUTICASONE [Concomitant]
     Active Substance: FLUTICASONE\FLUTICASONE PROPIONATE
  9. CALCIUM CARBONATE. [Concomitant]
     Active Substance: CALCIUM CARBONATE
  10. VITAMIN D                          /00107901/ [Concomitant]
     Active Substance: ERGOCALCIFEROL
  11. CARBOXYMETHYLCELLULOSE [Concomitant]
     Active Substance: CARBOXYMETHYLCELLULOSE
  12. AMOXICILLIN. [Concomitant]
     Active Substance: AMOXICILLIN
  13. LEVOTHYROXINE. [Concomitant]
     Active Substance: LEVOTHYROXINE
  14. ALLOPURINOL. [Concomitant]
     Active Substance: ALLOPURINOL
  15. ASPIRIN. [Concomitant]
     Active Substance: ASPIRIN
  16. HYDROMORPHONE [Concomitant]
     Active Substance: HYDROMORPHONE
  17. NICODERM CQ [Concomitant]
     Active Substance: NICOTINE
  18. ONDANSETRON ODT DRLA [Concomitant]
  19. JAKAFI [Suspect]
     Active Substance: RUXOLITINIB
     Dosage: 10 MG, BID
     Route: 048
  20. GLUTAMINE [Concomitant]
     Active Substance: GLUTAMINE
  21. LIDOCAINE. [Concomitant]
     Active Substance: LIDOCAINE
  22. OMEGA 3                            /01333901/ [Concomitant]
     Active Substance: FISH OIL\TOCOPHEROL
  23. CYCLOSPORINE. [Concomitant]
     Active Substance: CYCLOSPORINE
  24. ACYCLOVIR                          /00587301/ [Concomitant]
     Active Substance: ACYCLOVIR
  25. LOTEMAX [Concomitant]
     Active Substance: LOTEPREDNOL ETABONATE
  26. BUPROPION. [Concomitant]
     Active Substance: BUPROPION
  27. ALPRAZOLAM GENERICS [Concomitant]
     Active Substance: ALPRAZOLAM
  28. TIOTROPIUM [Concomitant]
     Active Substance: TIOTROPIUM
  29. BUTALBITAL AND ACETAMINOPHEN [Concomitant]
     Active Substance: ACETAMINOPHEN\BUTALBITAL

REACTIONS (1)
  - Death [Fatal]

NARRATIVE: CASE EVENT DATE: 201611
